FAERS Safety Report 6564932-0 (Version None)
Quarter: 2010Q1

REPORT INFORMATION
  Report Type: 
  Country: None (occurrence: None)
  Receive Date: 20100128
  Receipt Date: 20100111
  Transmission Date: 20100710
  Serious: No
  Sender: FDA-Public Use
  Company Number: 2010-00030

PATIENT
  Sex: Female

DRUGS (1)
  1. COLD REMEDY NASAL GEL [Suspect]
     Indication: NASOPHARYNGITIS
     Dosage: EACH NIGHT FOR 2-3 WEEKS; APPROX JUNE 2008
     Dates: start: 20080601

REACTIONS (4)
  - AGEUSIA [None]
  - ANOSMIA [None]
  - NASAL DISCOMFORT [None]
  - RHINALGIA [None]
